FAERS Safety Report 9533821 (Version 2)
Quarter: 2013Q3

REPORT INFORMATION
  Report Type: Spontaneous
  Country: US (occurrence: US)
  Receive Date: 20130918
  Receipt Date: 20130918
  Transmission Date: 20140515
  Serious: Yes (Hospitalization)
  Sender: FDA-Public Use
  Company Number: US-BRISTOL-MYERS SQUIBB COMPANY-19183672

PATIENT
  Age: 9 Year
  Sex: Female

DRUGS (3)
  1. ABILIFY [Suspect]
     Indication: MOOD SWINGS
     Route: 048
     Dates: start: 20130803
  2. COGENTIN [Suspect]
     Indication: PROPHYLAXIS
     Route: 048
  3. COCAINE [Suspect]

REACTIONS (2)
  - Substance-induced psychotic disorder [Unknown]
  - Abdominal pain upper [Unknown]
